FAERS Safety Report 5162174-7 (Version None)
Quarter: 2006Q4

REPORT INFORMATION
  Report Type: 
  Country: None (occurrence: None)
  Receive Date: 20061121
  Receipt Date: 20061113
  Transmission Date: 20070319
  Serious: Yes (Death)
  Sender: FDA-Public Use
  Company Number: CLOF-10379

PATIENT
  Age: 15 Year
  Sex: Female

DRUGS (1)
  1. CLOFARABINE [Suspect]
     Indication: ACUTE LYMPHOCYTIC LEUKAEMIA
     Dates: start: 20061024, end: 20061028

REACTIONS (6)
  - GENERAL PHYSICAL HEALTH DETERIORATION [None]
  - HYPOTENSION [None]
  - ILL-DEFINED DISORDER [None]
  - NEUTROPENIC SEPSIS [None]
  - RENAL FAILURE [None]
  - TACHYCARDIA [None]
